FAERS Safety Report 14472611 (Version 15)
Quarter: 2023Q1

REPORT INFORMATION
  Report Type: Spontaneous
  Country: CA (occurrence: CA)
  Receive Date: 20180201
  Receipt Date: 20230106
  Transmission Date: 20230418
  Serious: Yes (Hospitalization, Other)
  Sender: FDA-Public Use
  Company Number: CA-009507513-1801CAN014527

PATIENT
  Age: 48 Year
  Sex: Female
  Weight: 106.9 kg

DRUGS (116)
  1. EMEND [Suspect]
     Active Substance: APREPITANT
     Indication: Supportive care
     Dosage: 80.0 MILLIGRAM; 1 EVERY 1 DAY(S) (QD)/ 80MG, 1X/DAY
     Route: 048
     Dates: start: 20170331, end: 20170401
  2. EMEND [Suspect]
     Active Substance: APREPITANT
     Indication: Product used for unknown indication
     Dosage: 125.0 MILLIGRAM; 1 EVERY 1 DAY(S) (QD)
     Route: 048
  3. EMEND [Suspect]
     Active Substance: APREPITANT
     Dosage: 50.0 MILLIGRAM, QD (1 EVERY 1 DAY)
     Route: 065
  4. EMEND [Suspect]
     Active Substance: APREPITANT
     Dosage: UNK, EVERY DAY
     Route: 048
  5. EMEND [Suspect]
     Active Substance: APREPITANT
     Dosage: UNK, EVERY DAY
     Route: 048
  6. EMEND [Suspect]
     Active Substance: APREPITANT
     Dosage: UNK, EVERY DAY
     Route: 048
  7. EMEND [Suspect]
     Active Substance: APREPITANT
     Dosage: UNK, EVERY DAY
     Route: 048
  8. EMEND [Suspect]
     Active Substance: APREPITANT
     Dosage: UNK, EVERY DAY
     Route: 048
  9. DIPROSONE [Suspect]
     Active Substance: BETAMETHASONE DIPROPIONATE
     Indication: Tardive dyskinesia
     Dosage: 2 EVERY 1 DAYS, (BID)
     Route: 048
     Dates: start: 20170209
  10. DIPROSONE [Suspect]
     Active Substance: BETAMETHASONE DIPROPIONATE
     Dosage: 2 EVERY 1 DAYS, (BID)
     Route: 065
  11. DIPROSONE [Suspect]
     Active Substance: BETAMETHASONE DIPROPIONATE
     Dosage: 1 EVERY 12 HOURS
     Route: 048
  12. DIPROSONE [Suspect]
     Active Substance: BETAMETHASONE DIPROPIONATE
     Dosage: 2 EVERY 1 DAYS, (BID)
     Route: 065
  13. DIPROSONE [Suspect]
     Active Substance: BETAMETHASONE DIPROPIONATE
     Dosage: 1 EVERY 12 HOURS
     Route: 048
  14. DIPROSONE [Suspect]
     Active Substance: BETAMETHASONE DIPROPIONATE
     Dosage: 2 EVERY 1 DAYS, (BID)
     Route: 065
  15. DIPROSONE [Suspect]
     Active Substance: BETAMETHASONE DIPROPIONATE
     Dosage: 1 EVERY 12 HOURS
     Route: 048
  16. DIPROSONE [Suspect]
     Active Substance: BETAMETHASONE DIPROPIONATE
     Dosage: 2 EVERY 1 DAYS, (BID)
     Route: 065
  17. DIPROSONE [Suspect]
     Active Substance: BETAMETHASONE DIPROPIONATE
     Dosage: 1 EVERY 12 HOURS
     Route: 048
  18. DIPROSONE [Suspect]
     Active Substance: BETAMETHASONE DIPROPIONATE
     Dosage: UNK, 2X/DAY
     Route: 065
  19. CYCLOPHOSPHAMIDE [Suspect]
     Active Substance: CYCLOPHOSPHAMIDE
     Indication: Breast cancer
     Dosage: 1360 MG, 1 EVERY 2 WEEKS (CYCLICAL)
     Route: 042
  20. CYCLOPHOSPHAMIDE [Suspect]
     Active Substance: CYCLOPHOSPHAMIDE
     Indication: Tardive dyskinesia
     Dosage: 243 MILLIGRAM, UNK
     Route: 042
  21. CYCLOPHOSPHAMIDE [Suspect]
     Active Substance: CYCLOPHOSPHAMIDE
     Dosage: DOSAGE FORM NOT SPECIFIED
     Route: 042
  22. CYCLOPHOSPHAMIDE [Suspect]
     Active Substance: CYCLOPHOSPHAMIDE
     Dosage: 1360 MG, 1 EVERY 14 DAYS
     Route: 042
  23. CYCLOPHOSPHAMIDE [Suspect]
     Active Substance: CYCLOPHOSPHAMIDE
     Dosage: 1360 MG, 1 EVERY 2 WEEKS (CYCLICAL)
     Route: 042
  24. CYCLOPHOSPHAMIDE [Suspect]
     Active Substance: CYCLOPHOSPHAMIDE
     Dosage: DOSAGE FORM NOT SPECIFIED
     Route: 042
  25. CYCLOPHOSPHAMIDE [Suspect]
     Active Substance: CYCLOPHOSPHAMIDE
     Dosage: 1360 MG, 1 EVERY 14 DAYS
     Route: 042
  26. CYCLOPHOSPHAMIDE [Suspect]
     Active Substance: CYCLOPHOSPHAMIDE
     Dosage: 1360 MG
     Route: 042
     Dates: start: 20161201, end: 20170126
  27. CYCLOPHOSPHAMIDE [Suspect]
     Active Substance: CYCLOPHOSPHAMIDE
     Dosage: 1360 MG, 1 EVERY 2 WEEKS (CYCLICAL)
     Route: 042
  28. CYCLOPHOSPHAMIDE [Suspect]
     Active Substance: CYCLOPHOSPHAMIDE
     Dosage: DOSAGE FORM NOT SPECIFIED
     Route: 042
  29. CYCLOPHOSPHAMIDE [Suspect]
     Active Substance: CYCLOPHOSPHAMIDE
     Dosage: 1360 MG, 1 EVERY 14 DAYS
     Route: 042
  30. CYCLOPHOSPHAMIDE [Suspect]
     Active Substance: CYCLOPHOSPHAMIDE
     Dosage: 1360 MG
     Route: 042
  31. CYCLOPHOSPHAMIDE [Suspect]
     Active Substance: CYCLOPHOSPHAMIDE
     Dosage: 1360 MG, 1 EVERY 2 WEEKS (CYCLICAL)
     Route: 042
  32. CYCLOPHOSPHAMIDE [Suspect]
     Active Substance: CYCLOPHOSPHAMIDE
     Dosage: DOSAGE FORM NOT SPECIFIED
     Route: 042
  33. CYCLOPHOSPHAMIDE [Suspect]
     Active Substance: CYCLOPHOSPHAMIDE
     Dosage: 1360 MILLIGRAM, 1 EVERY 14 DAYS, 2000MG/VIAL
     Route: 042
  34. CYCLOPHOSPHAMIDE [Suspect]
     Active Substance: CYCLOPHOSPHAMIDE
     Dosage: 1360 MG
     Route: 042
  35. CYCLOPHOSPHAMIDE [Suspect]
     Active Substance: CYCLOPHOSPHAMIDE
     Dosage: 1360 MG, 1 EVERY 2 WEEKS (CYCLICAL)
     Route: 042
  36. CYCLOPHOSPHAMIDE [Suspect]
     Active Substance: CYCLOPHOSPHAMIDE
     Dosage: DOSAGE FORM NOT SPECIFIED
     Route: 042
  37. CYCLOPHOSPHAMIDE [Suspect]
     Active Substance: CYCLOPHOSPHAMIDE
     Dosage: 1360 MG
     Route: 042
  38. CYCLOPHOSPHAMIDE [Suspect]
     Active Substance: CYCLOPHOSPHAMIDE
     Dosage: 1360 MILLIGRAM, CYCLIC (1 EVERY 14 DAYS)
     Route: 042
  39. DOXORUBICIN HYDROCHLORIDE [Suspect]
     Active Substance: DOXORUBICIN HYDROCHLORIDE
     Indication: Breast cancer
     Dosage: DOSAGE FORM: SOLUTION INTRAVENOUS/INJETION; 136.0 MILLIGRAM, 1 EVERY 14 DAY(S) / 1 EVERY 2 WEEK(S)/
     Route: 042
     Dates: start: 20161215, end: 20170126
  40. DOXORUBICIN HYDROCHLORIDE [Suspect]
     Active Substance: DOXORUBICIN HYDROCHLORIDE
     Dosage: 136 MILLIGRAM, 1 EVERY 4 HOURS (Q4H)
     Route: 042
  41. DOXORUBICIN HYDROCHLORIDE [Suspect]
     Active Substance: DOXORUBICIN HYDROCHLORIDE
     Dosage: 136 MILLIGRAM, EVERY 2 WEEKS
     Route: 042
  42. DOXORUBICIN HYDROCHLORIDE [Suspect]
     Active Substance: DOXORUBICIN HYDROCHLORIDE
     Dosage: 136 MILLIGRAM, 1 EVERY 4 DAYS (Q4D)
     Route: 042
  43. DOXORUBICIN HYDROCHLORIDE [Suspect]
     Active Substance: DOXORUBICIN HYDROCHLORIDE
     Dosage: 136 MILLIGRAM, CYCLIC (1 EVERY 14 DAYS)
     Route: 042
  44. PACLITAXEL [Suspect]
     Active Substance: PACLITAXEL
     Indication: Breast cancer
     Dosage: 303 MILLIGRAM, UNK; DOSAGE FORM: LIQUID INTRAVENOUS
     Route: 042
  45. PACLITAXEL [Suspect]
     Active Substance: PACLITAXEL
     Indication: Supportive care
     Dosage: 393 MILLIGRAM, UNK; DOSAGE FORM: LIQUID INTRAVENOUS
     Route: 042
     Dates: start: 20170330, end: 20170330
  46. PACLITAXEL [Suspect]
     Active Substance: PACLITAXEL
     Dosage: 243 MILLIGRAM, UNK; DOSAGE FORM: LIQUID INTRAVENOUS
     Route: 042
  47. PACLITAXEL [Suspect]
     Active Substance: PACLITAXEL
     Dosage: UNK; DOSAGE FORM: LIQUID INTRAVENOUS
     Route: 065
  48. PACLITAXEL [Suspect]
     Active Substance: PACLITAXEL
     Dosage: 303 MILLIGRAM, UNK
     Route: 042
  49. PACLITAXEL [Suspect]
     Active Substance: PACLITAXEL
     Dosage: DOSAGE FORM: LIQUID INTRAVENOUS
     Route: 042
  50. PACLITAXEL [Suspect]
     Active Substance: PACLITAXEL
     Dosage: 393 MILLIGRAM
     Route: 042
  51. PACLITAXEL [Suspect]
     Active Substance: PACLITAXEL
     Dosage: UNK; DOSAGE FORM: LIQUID INTRAVENOUS
     Route: 065
  52. PACLITAXEL [Suspect]
     Active Substance: PACLITAXEL
     Dosage: DOSAGE FORM: LIQUID INTRAVENOUS
     Route: 042
  53. PACLITAXEL [Suspect]
     Active Substance: PACLITAXEL
     Dosage: UNK; DOSAGE FORM: LIQUID INTRAVENOUS
     Route: 065
  54. PACLITAXEL [Suspect]
     Active Substance: PACLITAXEL
     Dosage: DOSAGE FORM: LIQUID INTRAVENOUS
     Route: 042
  55. PACLITAXEL [Suspect]
     Active Substance: PACLITAXEL
     Dosage: UNK; DOSAGE FORM: LIQUID INTRAVENOUS
     Route: 065
  56. PACLITAXEL [Suspect]
     Active Substance: PACLITAXEL
     Dosage: DOSAGE FORM: LIQUID INTRAVENOUS
     Route: 042
  57. PACLITAXEL [Suspect]
     Active Substance: PACLITAXEL
     Dosage: UNK; DOSAGE FORM: LIQUID INTRAVENOUS
     Route: 065
  58. PACLITAXEL [Suspect]
     Active Substance: PACLITAXEL
     Dosage: DOSAGE FORM: LIQUID INTRAVENOUS
     Route: 042
  59. PACLITAXEL [Suspect]
     Active Substance: PACLITAXEL
     Dosage: 393 MILLIGRAM
     Route: 042
  60. ENOXAPARIN SODIUM [Suspect]
     Active Substance: ENOXAPARIN SODIUM
     Indication: Tardive dyskinesia
     Dosage: 150.0 MILLIGRAM; 1 EVERY 1 DAY(S) (QD)/ 150MG 1X/DAY
     Route: 058
     Dates: start: 20161222
  61. ENOXAPARIN SODIUM [Suspect]
     Active Substance: ENOXAPARIN SODIUM
     Dosage: UNK, 1 EVERY 1 DAYS (QD)
     Route: 058
  62. ENOXAPARIN SODIUM [Suspect]
     Active Substance: ENOXAPARIN SODIUM
     Dosage: UNK, 1 EVERY 1 DAYS (QD)
     Route: 058
  63. ENOXAPARIN SODIUM [Suspect]
     Active Substance: ENOXAPARIN SODIUM
     Dosage: UNK, 1 EVERY 1 DAYS (QD)
     Route: 058
  64. ENOXAPARIN SODIUM [Suspect]
     Active Substance: ENOXAPARIN SODIUM
     Dosage: UNK, 1 EVERY 1 DAYS (QD)
     Route: 058
  65. LEVOFLOXACIN [Suspect]
     Active Substance: LEVOFLOXACIN
     Indication: Tardive dyskinesia
     Dosage: 500.0 MILLIGRAM; 1 EVERY 1 DAY(S) (QD), DOSAGE FORM NOT SPECIFIED
     Route: 048
     Dates: start: 20170209
  66. LEVOFLOXACIN [Suspect]
     Active Substance: LEVOFLOXACIN
     Dosage: 500 MILLIGRAM
     Route: 048
  67. LEVOFLOXACIN [Suspect]
     Active Substance: LEVOFLOXACIN
     Dosage: DOSAGE FORM NOT SPECIFIED; 1 EVERY 1 DAYS
     Route: 048
  68. LEVOFLOXACIN [Suspect]
     Active Substance: LEVOFLOXACIN
     Dosage: DOSAGE FORM NOT SPECIFIED; 1 EVERY 1 DAYS
     Route: 048
  69. LEVOFLOXACIN [Suspect]
     Active Substance: LEVOFLOXACIN
     Dosage: DOSAGE FORM NOT SPECIFIED; 1 EVERY 1 DAYS
     Route: 048
  70. LEVOFLOXACIN [Suspect]
     Active Substance: LEVOFLOXACIN
     Dosage: DOSAGE FORM NOT SPECIFIED; 1 EVERY 1 DAYS
     Route: 048
  71. LEVOFLOXACIN [Suspect]
     Active Substance: LEVOFLOXACIN
     Dosage: 500.0 MG, 1X/DAY
     Route: 048
  72. LORAZEPAM [Suspect]
     Active Substance: LORAZEPAM
     Indication: Tardive dyskinesia
     Dosage: DOSAGE FORM NOT SPECIFIED; 2 EVERY 1 DAY
     Route: 048
  73. LORAZEPAM [Suspect]
     Active Substance: LORAZEPAM
     Dosage: DOSAGE FORM NOT SPECIFIED; 2 EVERY 1 DAY
     Route: 048
  74. LORAZEPAM [Suspect]
     Active Substance: LORAZEPAM
     Dosage: DOSAGE FORM NOT SPECIFIED; 2 EVERY 1 DAY
     Route: 048
  75. LORAZEPAM [Suspect]
     Active Substance: LORAZEPAM
     Dosage: DOSAGE FORM NOT SPECIFIED; 2 EVERY 1 DAY
     Route: 048
  76. LORAZEPAM [Suspect]
     Active Substance: LORAZEPAM
     Dosage: DOSAGE FORM NOT SPECIFIED; 1 EVERY 12 HOURS
     Route: 048
  77. LORAZEPAM [Suspect]
     Active Substance: LORAZEPAM
     Dosage: 0.5 MILLIGRAM , 2 EVERY 1 DAYS / 0.5 MG 2X/DAY
     Route: 048
     Dates: start: 20170123
  78. TYLENOL WITH CODEINE [Suspect]
     Active Substance: ACETAMINOPHEN\CODEINE PHOSPHATE
     Indication: Tardive dyskinesia
     Dosage: 30 MILLIGRAM, 6 EVERY 1 DAY
     Route: 065
  79. METOCLOPRAMIDE [Suspect]
     Active Substance: METOCLOPRAMIDE
     Indication: Tardive dyskinesia
     Dosage: 4 EVERY 1 DAY (QID)
     Route: 048
  80. METOCLOPRAMIDE [Suspect]
     Active Substance: METOCLOPRAMIDE
     Dosage: 4 EVERY 1 DAY (QID)
     Route: 048
  81. METOCLOPRAMIDE [Suspect]
     Active Substance: METOCLOPRAMIDE
     Dosage: 1 EVERY 6 HOURS
     Route: 048
  82. METOCLOPRAMIDE [Suspect]
     Active Substance: METOCLOPRAMIDE
     Dosage: 4 EVERY 1 DAY (QID)
     Route: 048
  83. METOCLOPRAMIDE [Suspect]
     Active Substance: METOCLOPRAMIDE
     Dosage: 4 EVERY 1 DAY (QID)
     Route: 048
  84. METOCLOPRAMIDE [Suspect]
     Active Substance: METOCLOPRAMIDE
     Dosage: 4 EVERY 1 DAY (QID)
     Route: 048
  85. METOCLOPRAMIDE [Suspect]
     Active Substance: METOCLOPRAMIDE
     Dosage: 10 MILLIGRAM, 4 EVERY 1 DAYS; 10 MG 4X/DAY (1 EVERY 6 HOURS)
     Route: 048
     Dates: start: 20161208
  86. RANITIDINE [Suspect]
     Active Substance: RANITIDINE
     Indication: Tardive dyskinesia
     Dosage: 2 EVERY 1 DAY
     Route: 048
  87. RANITIDINE [Suspect]
     Active Substance: RANITIDINE
     Dosage: 150 MILLIGRAM, 1 EVERY 2 WEEKS (CYCLICAL)
     Route: 048
     Dates: start: 20170112
  88. RANITIDINE [Suspect]
     Active Substance: RANITIDINE
     Dosage: 2 EVERY 1 DAY
     Route: 048
  89. RANITIDINE [Suspect]
     Active Substance: RANITIDINE
     Dosage: 150 MILLIGRAM, 1 EVERY 12 HOURS
     Route: 048
  90. RANITIDINE [Suspect]
     Active Substance: RANITIDINE
     Dosage: 2 EVERY 1 DAY
     Route: 048
  91. RANITIDINE [Suspect]
     Active Substance: RANITIDINE
     Dosage: 2 EVERY 1 DAY
     Route: 048
  92. RANITIDINE [Suspect]
     Active Substance: RANITIDINE
     Dosage: 150 MG 2 EVERY 1 DAY; 150 MG 2X/DAY
     Route: 048
  93. TRASTUZUMAB [Suspect]
     Active Substance: TRASTUZUMAB
     Indication: Tardive dyskinesia
     Dosage: 626.0 MILLIGRAM
     Route: 065
  94. TRASTUZUMAB [Suspect]
     Active Substance: TRASTUZUMAB
     Dosage: 866.0 MILLIGRAM
     Route: 065
     Dates: start: 20170330
  95. TRASTUZUMAB [Suspect]
     Active Substance: TRASTUZUMAB
     Dosage: UNK
     Route: 065
  96. TRASTUZUMAB [Suspect]
     Active Substance: TRASTUZUMAB
     Dosage: 866.0 MILLIGRAM
     Route: 065
  97. TRASTUZUMAB [Suspect]
     Active Substance: TRASTUZUMAB
     Dosage: 625 MILLIGRAM
     Route: 065
  98. TRASTUZUMAB [Suspect]
     Active Substance: TRASTUZUMAB
     Dosage: UNK
     Route: 065
  99. TRASTUZUMAB [Suspect]
     Active Substance: TRASTUZUMAB
     Dosage: UNK
     Route: 065
  100. TRASTUZUMAB [Suspect]
     Active Substance: TRASTUZUMAB
     Dosage: UNK
     Route: 065
  101. TRASTUZUMAB [Suspect]
     Active Substance: TRASTUZUMAB
     Dosage: UNK
     Route: 065
  102. ONDANSETRON HYDROCHLORIDE [Suspect]
     Active Substance: ONDANSETRON HYDROCHLORIDE
     Indication: Supportive care
     Dosage: 8.0 MILLIGRAM, FREQUENCY 6 EVERY (1) DAY
     Route: 048
  103. ONDANSETRON HYDROCHLORIDE [Suspect]
     Active Substance: ONDANSETRON HYDROCHLORIDE
     Dosage: UNK
     Route: 048
  104. ONDANSETRON HYDROCHLORIDE [Suspect]
     Active Substance: ONDANSETRON HYDROCHLORIDE
     Dosage: 8 MILLIGRAM, QD
     Route: 048
  105. ONDANSETRON HYDROCHLORIDE [Suspect]
     Active Substance: ONDANSETRON HYDROCHLORIDE
     Dosage: 8 MILLIGRAM, QD
     Route: 048
  106. ONDANSETRON HYDROCHLORIDE [Suspect]
     Active Substance: ONDANSETRON HYDROCHLORIDE
     Dosage: UNK
     Route: 048
  107. ONDANSETRON HYDROCHLORIDE [Suspect]
     Active Substance: ONDANSETRON HYDROCHLORIDE
     Dosage: UNK
     Route: 048
  108. ONDANSETRON HYDROCHLORIDE [Suspect]
     Active Substance: ONDANSETRON HYDROCHLORIDE
     Dosage: UNK
     Route: 048
  109. DEXAMETHASONE [Suspect]
     Active Substance: DEXAMETHASONE
     Indication: Supportive care
     Dosage: 20.0 MILLIGRAM; 1 EVERY 1 DAY(S) (QD) DOSAGE FORM: NOT SPECIFIED/ 20MG 1X/DAY
     Route: 048
     Dates: start: 20170329, end: 20170330
  110. DEXAMETHASONE [Suspect]
     Active Substance: DEXAMETHASONE
     Dosage: UNK
     Route: 048
  111. DEXAMETHASONE [Suspect]
     Active Substance: DEXAMETHASONE
     Dosage: UNK
     Route: 048
  112. DEXAMETHASONE [Suspect]
     Active Substance: DEXAMETHASONE
     Dosage: UNK
     Route: 048
  113. DEXAMETHASONE [Suspect]
     Active Substance: DEXAMETHASONE
     Dosage: UNK
     Route: 048
  114. PEGFILGRASTIM [Suspect]
     Active Substance: PEGFILGRASTIM
     Indication: Supportive care
     Dosage: 6 MILLIGRAM, UNK
     Route: 058
  115. FILGRASTIM [Suspect]
     Active Substance: FILGRASTIM
     Indication: Supportive care
     Dosage: 480.0 MILLIGRAM, 1 EVERY 1 DAY, QD
     Route: 065
  116. FILGRASTIM [Suspect]
     Active Substance: FILGRASTIM
     Dosage: 480.0 MILLIGRAM, 1 EVERY 1 DAY, QD
     Route: 065

REACTIONS (11)
  - Gastrointestinal disorder [Recovered/Resolved]
  - Pyrexia [Recovered/Resolved]
  - Fatigue [Recovered/Resolved]
  - Dyspnoea [Recovered/Resolved]
  - Cough [Recovered/Resolved]
  - Nausea [Recovered/Resolved]
  - Hypoxia [Recovered/Resolved]
  - Lung opacity [Recovered/Resolved]
  - Atelectasis [Unknown]
  - Rash [Unknown]
  - Off label use [Recovered/Resolved]

NARRATIVE: CASE EVENT DATE: 20170203
